FAERS Safety Report 12962583 (Version 4)
Quarter: 2016Q4

REPORT INFORMATION
  Report Type: Report from Study
  Country: US (occurrence: US)
  Receive Date: 20161121
  Receipt Date: 20161214
  Transmission Date: 20170207
  Serious: Yes (Other)
  Sender: FDA-Public Use
  Company Number: US-BIOGEN-2016BI00317397

PATIENT
  Age: 45 Year
  Sex: Female
  Weight: 108.69 kg

DRUGS (10)
  1. BG00012 [Suspect]
     Active Substance: DIMETHYL FUMARATE
     Route: 048
     Dates: start: 20150115, end: 20161110
  2. ZOLOFT [Concomitant]
     Active Substance: SERTRALINE HYDROCHLORIDE
     Indication: DEPRESSION
     Route: 048
     Dates: start: 200702
  3. DIAZEPAM. [Concomitant]
     Active Substance: DIAZEPAM
     Indication: PROCEDURAL ANXIETY
     Route: 048
     Dates: start: 20161108, end: 20161108
  4. MONTELUKAST [Concomitant]
     Active Substance: MONTELUKAST SODIUM
     Indication: UPPER RESPIRATORY TRACT INFECTION
     Route: 048
     Dates: start: 20130923
  5. MULTIVITAMIN GENETIC CENTRUM [Concomitant]
     Indication: PROPHYLAXIS
     Route: 048
     Dates: start: 200811
  6. ZYRTEC [Concomitant]
     Active Substance: CETIRIZINE HYDROCHLORIDE
     Indication: MULTIPLE ALLERGIES
     Route: 048
     Dates: start: 2007
  7. AMANTADINE [Concomitant]
     Active Substance: AMANTADINE
     Indication: FATIGUE
     Route: 048
     Dates: start: 20141018
  8. DIAZEPAM. [Concomitant]
     Active Substance: DIAZEPAM
     Indication: TENSION HEADACHE
     Route: 048
     Dates: start: 20100904
  9. BG00012 [Suspect]
     Active Substance: DIMETHYL FUMARATE
     Indication: RELAPSING-REMITTING MULTIPLE SCLEROSIS
     Route: 048
     Dates: start: 20100609, end: 20150114
  10. CLOBETASOL PROPIONATE 0.5% [Concomitant]
     Indication: DYSHIDROTIC ECZEMA
     Route: 061
     Dates: start: 20150311

REACTIONS (1)
  - Multiple sclerosis [Not Recovered/Not Resolved]

NARRATIVE: CASE EVENT DATE: 20161110
